FAERS Safety Report 12724368 (Version 1)
Quarter: 2016Q3

REPORT INFORMATION
  Report Type: Spontaneous
  Country: US (occurrence: US)
  Receive Date: 20160906
  Receipt Date: 20160906
  Transmission Date: 20161109
  Serious: No
  Sender: FDA-Public Use
  Company Number: None

PATIENT
  Age: 20 Year
  Sex: Female
  Weight: 72 kg

DRUGS (3)
  1. PAROXETINE. [Suspect]
     Active Substance: PAROXETINE
     Indication: DEPRESSION
     Route: 048
     Dates: start: 20160804
  2. PAROXETINE. [Suspect]
     Active Substance: PAROXETINE
     Indication: ANXIETY
     Route: 048
     Dates: start: 20160804
  3. PAROXETINE. [Suspect]
     Active Substance: PAROXETINE
     Indication: PANIC DISORDER
     Route: 048
     Dates: start: 20160804

REACTIONS (8)
  - Headache [None]
  - Vertigo [None]
  - Anxiety [None]
  - Muscle spasms [None]
  - Fear [None]
  - Tremor [None]
  - Dizziness [None]
  - Restless legs syndrome [None]
